FAERS Safety Report 7058940-3 (Version None)
Quarter: 2010Q4

REPORT INFORMATION
  Report Type: 
  Country: None (occurrence: None)
  Receive Date: 20101024
  Receipt Date: 20101021
  Transmission Date: 20110411
  Serious: Yes (Other)
  Sender: FDA-Public Use
  Company Number: AU-WYE-G06812210

PATIENT
  Age: 38 Year
  Sex: Female
  Weight: 60 kg

DRUGS (1)
  1. PRISTIQ [Suspect]
     Indication: DEPRESSION
     Dosage: 100MG INCREASED TO 150MG
     Route: 048
     Dates: start: 20100301

REACTIONS (2)
  - APHASIA [None]
  - MEMORY IMPAIRMENT [None]
